FAERS Safety Report 4337796-3 (Version None)
Quarter: 2004Q2

REPORT INFORMATION
  Report Type: 
  Country: None (occurrence: None)
  Receive Date: 20040408
  Receipt Date: 20040325
  Transmission Date: 20050107
  Serious: Yes (Death, Hospitalization)
  Sender: FDA-Public Use
  Company Number: 2004-06843

PATIENT
  Age: 34 Year
  Sex: Male
  Weight: 70 kg

DRUGS (6)
  1. VIREAD [Suspect]
     Indication: HIV INFECTION
     Dosage: 300 MG, ONCE A DAY, ORAL
     Route: 048
     Dates: start: 20030301, end: 20031101
  2. ZERIT [Suspect]
     Dosage: 40 MG
     Dates: start: 20020301, end: 20031101
  3. ZIAGEN [Suspect]
     Dosage: 600 MG, ONCE A DAY, ORAL
     Route: 048
     Dates: start: 20020201, end: 20030301
  4. PEG-INTRON [Suspect]
     Dosage: 120 MCG, ONCE A WEEK, INTRAMUSCULAR
     Route: 030
     Dates: start: 20031001, end: 20031101
  5. REBETOL [Suspect]
     Dosage: 100 MG, ONCE A DAY, ORAL
     Route: 048
     Dates: start: 20031001, end: 20031101
  6. METHADONE HCL [Concomitant]

REACTIONS (4)
  - ABDOMINAL SEPSIS [None]
  - BLOOD LACTIC ACID INCREASED [None]
  - NEUTROPENIA [None]
  - THROMBOCYTOPENIA [None]
